FAERS Safety Report 21870055 (Version 2)
Quarter: 2023Q1

REPORT INFORMATION
  Report Type: Report from Study
  Country: CO (occurrence: CO)
  Receive Date: 20230117
  Receipt Date: 20230130
  Transmission Date: 20230417
  Serious: Yes (Other)
  Sender: FDA-Public Use
  Company Number: CO-BAYER-2023A004793

PATIENT
  Sex: Female

DRUGS (10)
  1. EYLEA [Suspect]
     Active Substance: AFLIBERCEPT
     Indication: Diabetic retinal oedema
     Dosage: 2 MG INTRAVITREALLY, MONTHLY FOR 5 MONTHS AND THEN EVERY 2 MONTH, SOLUTION FOR INJECTION,40MG/ML
     Route: 031
     Dates: start: 20210310, end: 20210310
  2. EYLEA [Suspect]
     Active Substance: AFLIBERCEPT
     Dosage: UNK, LEFT EYE, SOLUTION FOR INJECTION,40MG/ML
     Route: 031
     Dates: start: 20210415, end: 20210415
  3. EYLEA [Suspect]
     Active Substance: AFLIBERCEPT
     Dosage: UNK, LEFT EYE, SOLUTION FOR INJECTION,40MG/ML
     Route: 031
     Dates: start: 20210526, end: 20210526
  4. EYLEA [Suspect]
     Active Substance: AFLIBERCEPT
     Dosage: UNK, BOTH EYES, SOLUTION FOR INJECTION,40MG/ML
     Route: 031
     Dates: start: 20210804, end: 20210804
  5. EYLEA [Suspect]
     Active Substance: AFLIBERCEPT
     Dosage: UNK, BOTH EYES, SOLUTION FOR INJECTION,40MG/ML
     Route: 031
     Dates: start: 20210910, end: 20210910
  6. EYLEA [Suspect]
     Active Substance: AFLIBERCEPT
     Dosage: UNK, BOTH EYES, SOLUTION FOR INJECTION,40MG/ML
     Route: 031
     Dates: start: 20211013, end: 20211013
  7. EYLEA [Suspect]
     Active Substance: AFLIBERCEPT
     Dosage: UNK, BOTH EYES, SOLUTION FOR INJECTION,40MG/ML
     Route: 031
     Dates: start: 20211216, end: 20211216
  8. EYLEA [Suspect]
     Active Substance: AFLIBERCEPT
     Dosage: UNK, RIGHT EYE, SOLUTION FOR INJECTION,40MG/ML
     Route: 031
     Dates: start: 20220210, end: 20220210
  9. EYLEA [Suspect]
     Active Substance: AFLIBERCEPT
     Dosage: UNK, LEFT EYE, SOLUTION FOR INJECTION,40MG/ML
     Route: 031
     Dates: start: 20220303, end: 20220303
  10. EYLEA [Suspect]
     Active Substance: AFLIBERCEPT
     Dosage: UNK, RIGHT EYE, SOLUTION FOR INJECTION,40MG/ML
     Route: 031
     Dates: start: 20220512, end: 20220512

REACTIONS (3)
  - Blindness unilateral [Not Recovered/Not Resolved]
  - Cataract operation [Recovering/Resolving]
  - Inappropriate schedule of product administration [Unknown]

NARRATIVE: CASE EVENT DATE: 20221226
